FAERS Safety Report 6782643-3 (Version None)
Quarter: 2010Q2

REPORT INFORMATION
  Report Type: 
  Country: None (occurrence: None)
  Receive Date: 20100621
  Receipt Date: 20100609
  Transmission Date: 20101027
  Serious: Yes (Hospitalization)
  Sender: FDA-Public Use
  Company Number: FR-PFIZER INC-2010072003

PATIENT
  Age: 60 Year
  Sex: Male

DRUGS (8)
  1. CHAMPIX [Suspect]
     Indication: SMOKING CESSATION THERAPY
     Dosage: 2 DF, 1X/DAY
     Route: 048
     Dates: start: 20100303, end: 20100326
  2. BETAMETHASONE/CALCIPOTRIOL [Suspect]
     Indication: PSORIASIS
     Dosage: UNK
     Route: 003
     Dates: start: 20050101, end: 20100328
  3. TAHOR [Concomitant]
  4. PRAXILENE [Concomitant]
  5. LANZOR [Concomitant]
  6. KARDEGIC [Concomitant]
  7. COKENZEN [Concomitant]
  8. NICOTINE [Concomitant]
     Dosage: UNK
     Dates: start: 20100322

REACTIONS (2)
  - PSORIASIS [None]
  - RASH PUSTULAR [None]
